FAERS Safety Report 7555977-2 (Version None)
Quarter: 2011Q2

REPORT INFORMATION
  Report Type: 
  Country: None (occurrence: None)
  Receive Date: 20110619
  Receipt Date: 20110607
  Transmission Date: 20111010
  Serious: Yes (Hospitalization)
  Sender: FDA-Public Use
  Company Number: US-ELI_LILLY_AND_COMPANY-US201106002935

PATIENT
  Sex: Male

DRUGS (1)
  1. FORTEO [Suspect]
     Dosage: UNKNOWN

REACTIONS (3)
  - BLOOD GLUCOSE ABNORMAL [None]
  - COMPRESSION FRACTURE [None]
  - URINARY TRACT INFECTION [None]
